FAERS Safety Report 9011844 (Version 1)
Quarter: 2013Q1

REPORT INFORMATION
  Report Type: Spontaneous
  Country: ES (occurrence: ES)
  Receive Date: 20130113
  Receipt Date: 20130113
  Transmission Date: 20140127
  Serious: Yes (Hospitalization)
  Sender: FDA-Public Use
  Company Number: ES-ELI_LILLY_AND_COMPANY-ES201212007828

PATIENT
  Sex: Female

DRUGS (1)
  1. FORSTEO [Suspect]
     Dosage: UNK, UNKNOWN
     Route: 065

REACTIONS (8)
  - Upper limb fracture [Unknown]
  - Blood pressure abnormal [Unknown]
  - Viral infection [Unknown]
  - Volume blood decreased [Unknown]
  - Fall [Unknown]
  - Upper limb fracture [Unknown]
  - Bronchitis [Not Recovered/Not Resolved]
  - Depressed mood [Not Recovered/Not Resolved]
